FAERS Safety Report 15414604 (Version 2)
Quarter: 2018Q4

REPORT INFORMATION
  Report Type: Spontaneous
  Country: BR (occurrence: BR)
  Receive Date: 20180921
  Receipt Date: 20181002
  Transmission Date: 20190204
  Serious: Yes (Hospitalization, Other)
  Sender: FDA-Public Use
  Company Number: BR-ASTRAZENECA-2018SF18400

PATIENT
  Age: 38 Year
  Sex: Female
  Weight: 89.3 kg

DRUGS (4)
  1. FORXIGA [Suspect]
     Active Substance: DAPAGLIFLOZIN
     Indication: DIABETES MELLITUS
     Route: 048
     Dates: start: 201411, end: 201807
  2. SIMVASTATIN. [Concomitant]
     Active Substance: SIMVASTATIN
  3. INSULIN [Concomitant]
     Active Substance: INSULIN NOS
     Indication: BLOOD GLUCOSE INCREASED
  4. METFORMIN [Concomitant]
     Active Substance: METFORMIN HYDROCHLORIDE
     Dates: start: 2018

REACTIONS (4)
  - Abdominal distension [Unknown]
  - Diabetes mellitus inadequate control [Unknown]
  - Anal abscess [Recovered/Resolved]
  - Fournier^s gangrene [Recovered/Resolved]

NARRATIVE: CASE EVENT DATE: 2018
